FAERS Safety Report 4877817-2 (Version None)
Quarter: 2006Q1

REPORT INFORMATION
  Report Type: 
  Country: None (occurrence: None)
  Receive Date: 20060111
  Receipt Date: 20060104
  Transmission Date: 20060701
  Serious: Yes (Other)
  Sender: FDA-Public Use
  Company Number: PHEH2006US00492

PATIENT
  Age: 34 Year
  Sex: Female

DRUGS (9)
  1. TRILEPTAL [Suspect]
  2. COPAXONE [Suspect]
     Indication: MULTIPLE SCLEROSIS
     Dates: start: 20040720
  3. KLONOPIN [Suspect]
  4. DARVOCET-N 50 [Suspect]
  5. PROVIGIL [Suspect]
  6. ZOLOFT [Suspect]
  7. ALBUTEROL [Suspect]
  8. DETROL [Suspect]
  9. PRILOSEC [Suspect]

REACTIONS (4)
  - ABORTION INDUCED [None]
  - DRUG EXPOSURE DURING PREGNANCY [None]
  - INTRA-UTERINE DEATH [None]
  - ULTRASOUND FOETAL [None]
